FAERS Safety Report 16838614 (Version 1)
Quarter: 2019Q3

REPORT INFORMATION
  Report Type: Spontaneous
  Country: US (occurrence: US)
  Receive Date: 20190923
  Receipt Date: 20190923
  Transmission Date: 20191005
  Serious: Yes (Other)
  Sender: FDA-Public Use
  Company Number: US-PENTEC HEALTH-2019PEN00055

PATIENT
  Age: 83 Year
  Sex: Female
  Weight: 54 kg

DRUGS (5)
  1. CRYSTALLOID FLUIDS [Concomitant]
     Dosage: 3 L
     Route: 065
  2. EXPAREL [Suspect]
     Active Substance: BUPIVACAINE
     Dosage: 15 ML, ONCE (2.5%; INCISION WAS INFILTRATED)
     Route: 065
  3. ANESTHETIC INDUCTION AND GENERAL ANESTHETIC AGENTS [Concomitant]
     Route: 065
  4. PACKED RED BLOOD CELLS [Concomitant]
     Active Substance: HUMAN RED BLOOD CELL
     Dosage: 1 UNIT
     Route: 065
  5. BUPIVACAINE HYDROCHLORIDE. [Suspect]
     Active Substance: BUPIVACAINE HYDROCHLORIDE
     Dosage: 15 ML, ONCE (INCISION WAS INFILTRATED)
     Route: 065

REACTIONS (1)
  - Hypotension [Recovered/Resolved]
